FAERS Safety Report 7748065-3 (Version None)
Quarter: 2011Q3

REPORT INFORMATION
  Report Type: 
  Country: None (occurrence: None)
  Receive Date: 20110913
  Receipt Date: 20110706
  Transmission Date: 20111222
  Serious: No
  Sender: FDA-Public Use
  Company Number: US-ALLERGAN-1109124US

PATIENT
  Age: 20 Year
  Sex: Female

DRUGS (3)
  1. DUAC [Concomitant]
     Indication: ACNE
     Dosage: UNK
     Route: 061
  2. ADAPALENE [Concomitant]
     Indication: ACNE
     Dosage: UNK
     Route: 061
  3. ACZONE [Suspect]
     Indication: ACNE
     Dosage: 1 DF, BID
     Route: 061
     Dates: start: 20110617

REACTIONS (1)
  - MEDICATION RESIDUE [None]
